FAERS Safety Report 6649982-8 (Version None)
Quarter: 2010Q1

REPORT INFORMATION
  Report Type: 
  Country: None (occurrence: None)
  Receive Date: 20100324
  Receipt Date: 20100324
  Transmission Date: 20100710
  Serious: Yes (Disabling)
  Sender: FDA-Public Use
  Company Number: None

PATIENT
  Age: 70 Year
  Sex: Female
  Weight: 58.9676 kg

DRUGS (2)
  1. SPIRIVA [Suspect]
     Indication: ASTHMA
     Dosage: 2 PUFFS DAILY
     Dates: start: 20090201
  2. ADVAIR DISKUS 500/50 [Concomitant]

REACTIONS (1)
  - PALPITATIONS [None]
